FAERS Safety Report 6999477-7 (Version None)
Quarter: 2010Q3

REPORT INFORMATION
  Report Type: 
  Country: None (occurrence: None)
  Receive Date: 20100920
  Receipt Date: 20070425
  Transmission Date: 20110219
  Serious: Yes (Hospitalization, Other)
  Sender: FDA-Public Use
  Company Number: US-ASTRAZENECA-2006UW23099

PATIENT
  Age: 44 Year
  Sex: Female
  Weight: 84.8 kg

DRUGS (21)
  1. SEROQUEL [Suspect]
     Indication: DEPRESSION
     Dosage: 25 MG TO 300 MG
     Route: 048
     Dates: start: 20030627
  2. SEROQUEL [Suspect]
     Indication: ALCOHOLISM
     Dosage: 25 MG TO 300 MG
     Route: 048
     Dates: start: 20030627
  3. SEROQUEL [Suspect]
     Indication: INSOMNIA
     Dosage: 25 MG TO 300 MG
     Route: 048
     Dates: start: 20030627
  4. SEROQUEL [Suspect]
     Dosage: 25 MG TO 300 MG
     Route: 048
     Dates: start: 20030627
  5. SEROQUEL [Suspect]
     Dosage: 25MG TO 100MG
     Route: 048
     Dates: start: 20030801
  6. SEROQUEL [Suspect]
     Dosage: 25MG TO 100MG
     Route: 048
     Dates: start: 20030801
  7. SEROQUEL [Suspect]
     Dosage: 25MG TO 100MG
     Route: 048
     Dates: start: 20030801
  8. SEROQUEL [Suspect]
     Dosage: 25MG TO 100MG
     Route: 048
     Dates: start: 20030801
  9. ABILIFY [Concomitant]
     Indication: DEPRESSION
     Dosage: 25 MG TO BE TAKEN ONCE A DAY FOR SEVEN DAYS AND THEN GO UP TO 5 MG A DAY
     Dates: start: 20051024
  10. CLOZARIL [Concomitant]
  11. GEODON [Concomitant]
  12. CLONAZEPAM [Concomitant]
  13. GLUCOVANCE [Concomitant]
     Indication: DIABETES MELLITUS
     Dates: start: 20051024
  14. KLONOPIN [Concomitant]
     Indication: SLEEP DISORDER
     Dates: start: 20051024
  15. KLONOPIN [Concomitant]
     Indication: ANXIETY
     Dates: start: 20051024
  16. WELLBUTRIN [Concomitant]
     Dates: start: 20051024
  17. GLUCOPHAGE [Concomitant]
     Dates: start: 20060411
  18. PROTONIX [Concomitant]
     Dosage: 40 TO 80 MG
     Dates: start: 20030627
  19. LIPITOR [Concomitant]
     Dates: start: 20051110
  20. LEXAPRO [Concomitant]
     Dates: start: 20030627
  21. PRILOSEC [Concomitant]
     Dates: start: 20030627

REACTIONS (5)
  - DIABETES MELLITUS [None]
  - ILL-DEFINED DISORDER [None]
  - PANCREATITIS [None]
  - TYPE 2 DIABETES MELLITUS [None]
  - WEIGHT INCREASED [None]
